FAERS Safety Report 6442756-2 (Version None)
Quarter: 2009Q4

REPORT INFORMATION
  Report Type: 
  Country: None (occurrence: None)
  Receive Date: 20091117
  Receipt Date: 20091103
  Transmission Date: 20100525
  Serious: Yes (Hospitalization, Other)
  Sender: FDA-Public Use
  Company Number: PHHY2009DE48655

PATIENT
  Age: 89 Year
  Sex: Male

DRUGS (8)
  1. METOPROLOL TARTRATE [Suspect]
     Indication: CARDIAC FAILURE
     Dosage: 95 MG, QD
     Route: 048
     Dates: end: 20080712
  2. METOPROLOL TARTRATE [Interacting]
     Dosage: UNK
     Route: 048
     Dates: start: 20080715
  3. DIGITOXIN INJ [Interacting]
     Indication: CARDIAC FAILURE
     Dosage: 0.07 MG, QD
     Route: 048
     Dates: end: 20080712
  4. DILTIAZEM [Interacting]
     Indication: CORONARY ARTERY DISEASE
     Dosage: 240 MG, QD
     Route: 048
     Dates: end: 20080712
  5. SOTALOL HCL [Interacting]
     Indication: ARRHYTHMIA PROPHYLAXIS
     Dosage: 80 MG, BID
     Route: 048
     Dates: end: 20080712
  6. ALLOPURINOL [Concomitant]
     Indication: HYPERURICAEMIA
     Dosage: 300 MG, QD
     Route: 048
  7. BRONCHORETARD [Concomitant]
     Indication: ASTHMA
     Dosage: 350 MG, BID
     Route: 048
  8. METFORMIN HCL [Concomitant]
     Indication: TYPE 2 DIABETES MELLITUS
     Dosage: 1000 MG, QD
     Route: 048
     Dates: end: 20080712

REACTIONS (12)
  - ASTHENIA [None]
  - BRADYCARDIA [None]
  - CARDIOACTIVE DRUG LEVEL INCREASED [None]
  - DEHYDRATION [None]
  - GENERAL PHYSICAL HEALTH DETERIORATION [None]
  - HYPERKALAEMIA [None]
  - PROTHROMBIN TIME PROLONGED [None]
  - RENAL FAILURE [None]
  - SUPRAVENTRICULAR EXTRASYSTOLES [None]
  - SYNCOPE [None]
  - THROMBIN TIME PROLONGED [None]
  - WHITE BLOOD CELL COUNT INCREASED [None]
